FAERS Safety Report 26022264 (Version 1)
Quarter: 2025Q4

REPORT INFORMATION
  Report Type: Spontaneous
  Country: US (occurrence: US)
  Receive Date: 20251110
  Receipt Date: 20251110
  Transmission Date: 20260117
  Serious: No
  Sender: AMGEN
  Company Number: US-AMGEN-USASP2025217737

PATIENT
  Age: 69 Year
  Sex: Male

DRUGS (2)
  1. TEPEZZA [Suspect]
     Active Substance: TEPROTUMUMAB-TRBW
     Indication: Toxic goitre
     Dosage: 1360 MILLIGRAM (TEPEZZA 1360MG PIV X 1 DOSE, THEN 3 WEEKS LATER TEPEZZA 2700MG PIV EVERY 3 WEEKS X 7
     Route: 040
     Dates: start: 20250606
  2. TEPEZZA [Suspect]
     Active Substance: TEPROTUMUMAB-TRBW
     Dosage: 2700 MILLIGRAM, Q3WK
     Route: 040
     Dates: start: 2025

REACTIONS (1)
  - Joint swelling [Recovered/Resolved]

NARRATIVE: CASE EVENT DATE: 20251101
